FAERS Safety Report 6475722-1 (Version None)
Quarter: 2009Q4

REPORT INFORMATION
  Report Type: 
  Country: None (occurrence: None)
  Receive Date: 20091119
  Receipt Date: 20091014
  Transmission Date: 20100525
  Serious: Yes (Other)
  Sender: FDA-Public Use
  Company Number: 2009SP030637

PATIENT
  Age: 40 Year
  Sex: Female

DRUGS (1)
  1. IMPLANON [Suspect]
     Indication: DRUG USE FOR UNKNOWN INDICATION
     Dates: start: 20090409, end: 20090923

REACTIONS (1)
  - HYSTERECTOMY [None]
